FAERS Safety Report 23046718 (Version 1)
Quarter: 2023Q4

REPORT INFORMATION
  Report Type: Report from Study
  Country: GB (occurrence: GB)
  Receive Date: 20231009
  Receipt Date: 20231009
  Transmission Date: 20240110
  Serious: Yes (Other)
  Sender: FDA-Public Use
  Company Number: GB-002147023-NVSC2023GB007807

PATIENT
  Age: 78 Year
  Sex: Female

DRUGS (1)
  1. KISQALI [Suspect]
     Active Substance: RIBOCICLIB
     Indication: Breast cancer
     Dosage: UNK (1ST LINE WITH AI)
     Route: 065
     Dates: start: 202301

REACTIONS (10)
  - Renal impairment [Unknown]
  - Hypertension [Unknown]
  - Pain [Unknown]
  - Muscle spasms [Unknown]
  - Pain in extremity [Unknown]
  - Fall [Unknown]
  - Rash macular [Unknown]
  - Weight increased [Unknown]
  - Peripheral swelling [Unknown]
  - Rash pruritic [Unknown]

NARRATIVE: CASE EVENT DATE: 20230111
